FAERS Safety Report 23145684 (Version 1)
Quarter: 2023Q4

REPORT INFORMATION
  Report Type: Spontaneous
  Country: US (occurrence: US)
  Receive Date: 20231103
  Receipt Date: 20231103
  Transmission Date: 20240109
  Serious: No
  Sender: FDA-Public Use
  Company Number: US-INSUD PHARMA-2310US07362

PATIENT

DRUGS (1)
  1. NUVESSA [Suspect]
     Active Substance: METRONIDAZOLE
     Indication: Vaginitis gardnerella
     Dosage: UNKNOWN
     Route: 067

REACTIONS (1)
  - Drug ineffective [Unknown]

NARRATIVE: CASE EVENT DATE: 20231001
